FAERS Safety Report 17807436 (Version 1)
Quarter: 2020Q2

REPORT INFORMATION
  Report Type: Spontaneous
  Country: HR (occurrence: HR)
  Receive Date: 20200520
  Receipt Date: 20200520
  Transmission Date: 20200714
  Serious: Yes (Other)
  Sender: FDA-Public Use
  Company Number: HR-TEVA-2020-HR-1237698

PATIENT
  Sex: Female

DRUGS (5)
  1. IBUXIN RAPID [Suspect]
     Active Substance: IBUPROFEN LYSINE
     Dosage: 685 MG, UNIT DOSE:  5480 MG
     Route: 048
     Dates: start: 20200229, end: 20200229
  2. ANDOL [Suspect]
     Active Substance: ASPIRIN
     Dosage: 1000 MG
     Route: 048
     Dates: start: 20200229, end: 20200229
  3. IBUPROFEN. [Suspect]
     Active Substance: IBUPROFEN
     Dosage: 20 DF
     Route: 048
     Dates: start: 20200229, end: 20200229
  4. PARACETAMOL [Suspect]
     Active Substance: ACETAMINOPHEN
     Dosage: 300 MG, UNIT DOSE: 3000 MG
     Route: 048
     Dates: start: 20200229, end: 20200229
  5. FEXOFENADINE [Suspect]
     Active Substance: FEXOFENADINE HYDROCHLORIDE
     Route: 048
     Dates: start: 20200229, end: 20200229

REACTIONS (3)
  - No adverse event [Unknown]
  - Intentional overdose [Unknown]
  - Suicide attempt [Unknown]

NARRATIVE: CASE EVENT DATE: 20200229
